FAERS Safety Report 10209832 (Version 1)
Quarter: 2014Q2

REPORT INFORMATION
  Report Type: Spontaneous
  Country: PL (occurrence: PL)
  Receive Date: 20140602
  Receipt Date: 20140602
  Transmission Date: 20141212
  Serious: Yes (Hospitalization)
  Sender: FDA-Public Use
  Company Number: PL-ACCORD-023977

PATIENT
  Age: 24 Year
  Sex: Male

DRUGS (3)
  1. CLONAZEPAM [Suspect]
     Indication: PRODUCT USED FOR UNKNOWN INDICATION
     Dosage: SUBCUTANEOUS INJECTION OF A TRAMADOL, OPIPRAMOL, AND CLONAZEPAM MIXTURE.
     Route: 058
  2. TRAMADOL/TRAMADOL HYDROCHLORIDE [Suspect]
     Indication: PRODUCT USED FOR UNKNOWN INDICATION
     Dosage: SUBCUTANEOUS INJECTION OF A TRAMADOL, OPIPRAMOL, AND CLONAZEPAM MIXTURE
     Route: 058
  3. OPIPRAMOL\OPIPRAMOL HYDROCHLORIDE [Suspect]
     Indication: PRODUCT USED FOR UNKNOWN INDICATION
     Route: 058

REACTIONS (22)
  - Hypersomnia [Unknown]
  - Hyperhidrosis [Unknown]
  - Weight decreased [Unknown]
  - Agitation [Unknown]
  - Myalgia [Unknown]
  - Tachycardia [Unknown]
  - Pyoderma gangrenosum [Unknown]
  - Serotonin syndrome [Unknown]
  - Drug dependence [Unknown]
  - Insomnia [Unknown]
  - Abscess [Unknown]
  - Subcutaneous abscess [None]
  - Abscess soft tissue [None]
  - Fatigue [None]
  - Skin necrosis [None]
  - Haemorrhage subcutaneous [None]
  - Aspartate aminotransferase increased [None]
  - Alanine aminotransferase increased [None]
  - Body temperature fluctuation [None]
  - Bacterial infection [None]
  - Overdose [None]
  - Intentional product misuse [None]
